FAERS Safety Report 8856754 (Version 1)
Quarter: 2012Q4

REPORT INFORMATION
  Report Type: Spontaneous
  Country: DK (occurrence: None)
  Receive Date: 20121019
  Receipt Date: 20121019
  Transmission Date: 20130627
  Serious: Yes (Life-Threatening)
  Sender: FDA-Public Use
  Company Number: 2012MA012280

PATIENT
  Age: 42 Year
  Sex: Female

DRUGS (5)
  1. FEVERALL [Suspect]
     Indication: SUICIDE ATTEMPT
     Route: 048
     Dates: start: 20120928, end: 20120928
  2. DESLORATADINE [Suspect]
     Indication: SUICIDE ATTEMPT
     Route: 048
     Dates: start: 20120928, end: 20120928
  3. NAPROXEN DELAYED-RELEASE [Suspect]
     Indication: SUICIDE ATTEMPT
     Route: 048
     Dates: start: 20120928, end: 20120928
  4. AMOXICILLIN [Concomitant]
  5. CARDIOASPIRIN [Concomitant]
     Indication: SUICIDE ATTEMPT
     Route: 048
     Dates: start: 20120928, end: 20120928

REACTIONS (4)
  - Hepatitis [None]
  - Suicide attempt [None]
  - Intentional overdose [None]
  - Blood pressure decreased [None]
